FAERS Safety Report 26035508 (Version 2)
Quarter: 2025Q4

REPORT INFORMATION
  Report Type: Spontaneous
  Country: US (occurrence: US)
  Receive Date: 20251112
  Receipt Date: 20251202
  Transmission Date: 20260117
  Serious: Yes (Hospitalization, Other)
  Sender: ALEXION PHARMACEUTICALS
  Company Number: US-AstraZeneca-CH-00987391A

PATIENT
  Sex: Female

DRUGS (3)
  1. SYMBICORT [Suspect]
     Active Substance: BUDESONIDE\FORMOTEROL FUMARATE DIHYDRATE
     Dosage: 160 MICROGRAM, BID
     Route: 065
  2. BUDESONIDE\FORMOTEROL [Suspect]
     Active Substance: BUDESONIDE\FORMOTEROL
     Dosage: 160 MICROGRAM
     Route: 065
  3. INFLUENZA VIRUS VACCINE [Suspect]
     Active Substance: INFLUENZA VIRUS VACCINE
     Route: 065

REACTIONS (12)
  - Product dose omission issue [Unknown]
  - Pneumonia pseudomonal [Unknown]
  - Taste disorder [Unknown]
  - Pain [Unknown]
  - Myocardial infarction [Unknown]
  - Dry mouth [Unknown]
  - Chest pain [Unknown]
  - Limb discomfort [Unknown]
  - Asthenia [Unknown]
  - Hypersensitivity [Unknown]
  - Dyspnoea [Unknown]
  - Fatigue [Unknown]
